FAERS Safety Report 7221054-3 (Version None)
Quarter: 2011Q1

REPORT INFORMATION
  Report Type: 
  Country: None (occurrence: None)
  Receive Date: 20110112
  Receipt Date: 20110111
  Transmission Date: 20110831
  Serious: No
  Sender: FDA-Public Use
  Company Number: US-PFIZER INC-2010032390

PATIENT
  Sex: Female

DRUGS (2)
  1. PREMARIN [Suspect]
     Dosage: UNK
  2. ESTROPIPATE [Suspect]
     Dosage: UNK

REACTIONS (3)
  - NAUSEA [None]
  - MALAISE [None]
  - DIZZINESS [None]
